FAERS Safety Report 5141271-6 (Version None)
Quarter: 2006Q4

REPORT INFORMATION
  Report Type: 
  Country: None (occurrence: None)
  Receive Date: 20061101
  Receipt Date: 20061020
  Transmission Date: 20070319
  Serious: Yes (Hospitalization)
  Sender: FDA-Public Use
  Company Number: PHBS2006JP16531

PATIENT
  Age: 26 Year
  Sex: Female

DRUGS (2)
  1. NEORAL [Suspect]
     Indication: NEPHROTIC SYNDROME
     Dosage: 100 MG/D
     Route: 048
     Dates: start: 20040201, end: 20060901
  2. NEORAL [Suspect]
     Dosage: 75 MG/D
     Route: 048
     Dates: start: 20061004

REACTIONS (2)
  - BENIGN TUMOUR EXCISION [None]
  - HAEMORRHAGIC OVARIAN CYST [None]
